FAERS Safety Report 5875735-4 (Version None)
Quarter: 2008Q3

REPORT INFORMATION
  Report Type: 
  Country: None (occurrence: None)
  Receive Date: 20080905
  Receipt Date: 20080825
  Transmission Date: 20090109
  Serious: No
  Sender: FDA-Public Use
  Company Number: SPI200800432

PATIENT
  Age: 45 Year
  Sex: Female

DRUGS (5)
  1. AMITIZA [Suspect]
     Indication: CONSTIPATION
     Dosage: 24 MCG, ORAL
     Route: 048
     Dates: start: 20060201, end: 20060201
  2. AMITIZA [Suspect]
     Indication: CONSTIPATION
     Dosage: 24 MCG, ORAL
     Route: 048
     Dates: start: 20080818
  3. MIRALAX [Concomitant]
  4. EFFEXOR /01233801/ (VENLAFAXINE) [Concomitant]
  5. ZANTAC /00550802/ (RANITIDINE HYDROCHLORIDE) [Concomitant]

REACTIONS (4)
  - DYSPNOEA [None]
  - FLUSHING [None]
  - INFLUENZA LIKE ILLNESS [None]
  - PAIN [None]
